FAERS Safety Report 14382193 (Version 10)
Quarter: 2019Q4

REPORT INFORMATION
  Report Type: Spontaneous
  Country: US (occurrence: US)
  Receive Date: 20180112
  Receipt Date: 20191213
  Transmission Date: 20200122
  Serious: Yes (Other)
  Sender: FDA-Public Use
  Company Number: US-ACTELION-A-NJ2018-165704

PATIENT
  Age: 64 Year
  Sex: Female
  Weight: 75.74 kg

DRUGS (12)
  1. ZYRTEC [Concomitant]
     Active Substance: CETIRIZINE HYDROCHLORIDE
     Dosage: 10 MG, QD
     Dates: start: 201808
  2. ROSUVASTATIN. [Concomitant]
     Active Substance: ROSUVASTATIN
     Dosage: 5 MG, QD
     Dates: start: 2015
  3. ESTRADIOL. [Concomitant]
     Active Substance: ESTRADIOL
     Dosage: 10 MCG, Q2WEEK
     Dates: start: 2013
  4. OPSUMIT [Suspect]
     Active Substance: MACITENTAN
     Indication: PULMONARY ARTERIAL HYPERTENSION
     Dosage: 10 MG, QD
     Route: 048
     Dates: start: 20171208
  5. ASPIRIN. [Concomitant]
     Active Substance: ASPIRIN
     Dosage: 81 MG, QD
  6. FUROSEMIDE. [Concomitant]
     Active Substance: FUROSEMIDE
     Dosage: 20 MG, QD
     Dates: start: 201705
  7. PREDNISONE. [Concomitant]
     Active Substance: PREDNISONE
     Dosage: 10 MG, QD
     Dates: start: 201710
  8. METRONIDAZOLE. [Concomitant]
     Active Substance: METRONIDAZOLE
     Dosage: 0.75 %, QD
  9. CLARITIN [Concomitant]
     Active Substance: LORATADINE
     Dosage: 5 MG, PRN
  10. WARFARIN [Concomitant]
     Active Substance: WARFARIN
  11. BIOTIN [Concomitant]
     Active Substance: BIOTIN
  12. ELIQUIS [Concomitant]
     Active Substance: APIXABAN
     Dosage: 5 MG, QD
     Dates: start: 201706

REACTIONS (16)
  - Ear infection [Unknown]
  - Deafness [Not Recovered/Not Resolved]
  - Tongue geographic [Recovered/Resolved]
  - Middle ear effusion [Recovered/Resolved]
  - Ear congestion [Not Recovered/Not Resolved]
  - Fall [Unknown]
  - Condition aggravated [Recovering/Resolving]
  - Nasopharyngitis [Unknown]
  - Abdominal pain upper [Recovered/Resolved]
  - Nausea [Recovered/Resolved]
  - Device dislocation [Recovered/Resolved]
  - Diarrhoea [Recovered/Resolved]
  - Contusion [Unknown]
  - Neoplasm [Not Recovered/Not Resolved]
  - Sinusitis [Not Recovered/Not Resolved]
  - Tongue erythema [Recovering/Resolving]

NARRATIVE: CASE EVENT DATE: 2018
